FAERS Safety Report 17652506 (Version 2)
Quarter: 2020Q2

REPORT INFORMATION
  Report Type: Spontaneous
  Country: CL (occurrence: AR)
  Receive Date: 20200409
  Receipt Date: 20200413
  Transmission Date: 20200713
  Serious: Yes (Death, Other)
  Sender: FDA-Public Use
  Company Number: AR-ASTELLAS-2020US012768

PATIENT
  Age: 59 Year
  Sex: Male

DRUGS (1)
  1. ENZALUTAMIDE [Suspect]
     Active Substance: ENZALUTAMIDE
     Indication: HORMONE-REFRACTORY PROSTATE CANCER
     Route: 048
     Dates: start: 20190228

REACTIONS (1)
  - Death [Fatal]

NARRATIVE: CASE EVENT DATE: 20200327
